FAERS Safety Report 13611875 (Version 1)
Quarter: 2017Q2

REPORT INFORMATION
  Report Type: Spontaneous
  Country: US (occurrence: US)
  Receive Date: 20170605
  Receipt Date: 20170605
  Transmission Date: 20170830
  Serious: No
  Sender: FDA-Public Use
  Company Number: None

PATIENT
  Age: 60 Year
  Sex: Female
  Weight: 63 kg

DRUGS (4)
  1. OMEGA 3 [Concomitant]
     Active Substance: OMEGA-3 FATTY ACIDS
  2. XIIDRA [Suspect]
     Active Substance: LIFITEGRAST
     Indication: DRY EYE
     Dosage: ?          QUANTITY:1 DROP(S);?
     Route: 047
     Dates: start: 20170525, end: 20170604
  3. CALCIUM [Concomitant]
     Active Substance: CALCIUM
  4. GENERIC AUGMENTIN [Concomitant]

REACTIONS (6)
  - Cough [None]
  - Instillation site erythema [None]
  - Purulent discharge [None]
  - Aphonia [None]
  - Sinusitis [None]
  - Tympanic membrane perforation [None]

NARRATIVE: CASE EVENT DATE: 20170526
